FAERS Safety Report 17113149 (Version 4)
Quarter: 2020Q1

REPORT INFORMATION
  Report Type: Spontaneous
  Country: US (occurrence: US)
  Receive Date: 20191204
  Receipt Date: 20200323
  Transmission Date: 20200409
  Serious: Yes (Hospitalization, Other)
  Sender: FDA-Public Use
  Company Number: US-MALLINCKRODT-T201907754

PATIENT
  Age: 59 Year
  Sex: Male

DRUGS (3)
  1. UPADACITINIB [Concomitant]
     Active Substance: UPADACITINIB
     Indication: PRODUCT USED FOR UNKNOWN INDICATION
     Dosage: UNK,
     Route: 065
  2. H.P. ACTHAR [Suspect]
     Active Substance: CORTICOTROPIN
     Indication: RHEUMATOID ARTHRITIS
     Dosage: 80 UNITS / 1 ML,  2 TIMES PER WEEK (SUNDAY/WEDNESDAY)
     Route: 058
     Dates: start: 20150615
  3. H.P. ACTHAR [Suspect]
     Active Substance: CORTICOTROPIN
     Dosage: 80UNITS/1ML, TWO TIMES A WEEK, (SUN/WED)
     Route: 058
     Dates: start: 201801

REACTIONS (7)
  - Chronic obstructive pulmonary disease [Not Recovered/Not Resolved]
  - Pneumonia [Recovering/Resolving]
  - Renal impairment [Recovering/Resolving]
  - Pulmonary mass [Not Recovered/Not Resolved]
  - Hypoacusis [Unknown]
  - Gait inability [Not Recovered/Not Resolved]
  - Pain [Not Recovered/Not Resolved]

NARRATIVE: CASE EVENT DATE: 202001
